FAERS Safety Report 6574465-3 (Version None)
Quarter: 2010Q1

REPORT INFORMATION
  Report Type: 
  Country: None (occurrence: None)
  Receive Date: 20100209
  Receipt Date: 20090727
  Transmission Date: 20100710
  Serious: No
  Sender: FDA-Public Use
  Company Number: A0800290A

PATIENT
  Age: 50 Year

DRUGS (8)
  1. PAXIL [Suspect]
     Dosage: 10MG PER DAY
     Route: 048
     Dates: end: 20090501
  2. CHANTIX [Suspect]
     Indication: SMOKING CESSATION THERAPY
     Dosage: .5MG PER DAY
     Route: 048
     Dates: start: 20090424, end: 20090501
  3. SYNTHROID [Concomitant]
     Indication: THYROID DISORDER
  4. HYDROCHLOROTHIAZIDE [Concomitant]
  5. ACYCLOVIR [Concomitant]
  6. OMEPRAZOLE [Concomitant]
  7. METOCLOPRAMIDE [Concomitant]
     Indication: NAUSEA
  8. ATENOLOL [Concomitant]

REACTIONS (3)
  - DRUG INTERACTION [None]
  - SPEECH DISORDER [None]
  - TRISMUS [None]
